FAERS Safety Report 5855004-9 (Version None)
Quarter: 2008Q3

REPORT INFORMATION
  Report Type: 
  Country: None (occurrence: None)
  Receive Date: 20080822
  Receipt Date: 20080522
  Transmission Date: 20090109
  Serious: No
  Sender: FDA-Public Use
  Company Number: US-ABBOTT-08P-163-0452934-00

PATIENT
  Sex: Male
  Weight: 97.61 kg

DRUGS (4)
  1. SYNTHROID [Suspect]
     Indication: HYPOTHYROIDISM
     Route: 048
     Dates: start: 20080501
  2. METOPROLOL SUCCINATE [Concomitant]
     Indication: HYPERTENSION
  3. MULTI-VITAMINS [Concomitant]
     Indication: DRUG USE FOR UNKNOWN INDICATION
  4. BISACODYL [Concomitant]
     Indication: BOWEL MOVEMENT IRREGULARITY

REACTIONS (4)
  - ARTHRALGIA [None]
  - DYSPHONIA [None]
  - MYALGIA [None]
  - OROPHARYNGEAL PAIN [None]
